FAERS Safety Report 5991152-0 (Version None)
Quarter: 2008Q4

REPORT INFORMATION
  Report Type: 
  Country: None (occurrence: None)
  Receive Date: 20081202
  Receipt Date: 20080505
  Transmission Date: 20090506
  Serious: Yes (Other)
  Sender: FDA-Public Use
  Company Number: WAES 0805USA00917

PATIENT
  Age: 81 Year
  Sex: Female

DRUGS (2)
  1. FOSAMAX [Suspect]
     Indication: OSTEOPOROSIS PROPHYLAXIS
     Dosage: 70 MG/PO
     Route: 048
     Dates: start: 20030101, end: 20070301
  2. FOSAMAX PLUS D [Suspect]
     Indication: OSTEOPOROSIS PROPHYLAXIS
     Dosage: 70 MG/WKY/PO
     Route: 048

REACTIONS (7)
  - DENTAL CARIES [None]
  - IMPAIRED HEALING [None]
  - LICHEN PLANUS [None]
  - ORAL INFECTION [None]
  - OSTEONECROSIS [None]
  - PAIN IN JAW [None]
  - PULPITIS DENTAL [None]
